FAERS Safety Report 8600486-2 (Version None)
Quarter: 2012Q3

REPORT INFORMATION
  Report Type: 
  Country: None (occurrence: None)
  Receive Date: 20120808
  Receipt Date: 20120808
  Transmission Date: 20120928
  Serious: Yes (Other)
  Sender: FDA-Public Use
  Company Number: None

PATIENT
  Age: 49 Year
  Sex: Female
  Weight: 63.5036 kg

DRUGS (1)
  1. LEVOMEFOLATE CALCIUM [Suspect]
     Indication: MAJOR DEPRESSION
     Dosage: 15MG DAILY PO
     Route: 048
     Dates: start: 20120415, end: 20120713

REACTIONS (3)
  - MAJOR DEPRESSION [None]
  - DISEASE RECURRENCE [None]
  - PRODUCT SUBSTITUTION ISSUE [None]
